FAERS Safety Report 20232241 (Version 2)
Quarter: 2022Q2

REPORT INFORMATION
  Report Type: Spontaneous
  Country: GB (occurrence: GB)
  Receive Date: 20211227
  Receipt Date: 20220408
  Transmission Date: 20220720
  Serious: Yes (Other)
  Sender: FDA-Public Use
  Company Number: GB-002147023-NVSC2021GB291305

PATIENT
  Sex: Female

DRUGS (1)
  1. OMALIZUMAB [Suspect]
     Active Substance: OMALIZUMAB
     Indication: Product used for unknown indication
     Dosage: UNK
     Route: 064

REACTIONS (7)
  - Auditory neuropathy spectrum disorder [Unknown]
  - Renal hypoplasia [Unknown]
  - Face presentation [Unknown]
  - Hyperreflexia [Unknown]
  - Strabismus [Unknown]
  - Neonatal hypoacusis [Unknown]
  - Foetal exposure during pregnancy [Unknown]
